FAERS Safety Report 17046593 (Version 1)
Quarter: 2019Q4

REPORT INFORMATION
  Report Type: Spontaneous
  Country: CA (occurrence: CA)
  Receive Date: 20191119
  Receipt Date: 20191119
  Transmission Date: 20200122
  Serious: Yes (Other)
  Sender: FDA-Public Use
  Company Number: CA-AUROBINDO-AUR-APL-2019-073051

PATIENT
  Age: 29 Year
  Sex: Female

DRUGS (3)
  1. ESTRADIOL. [Suspect]
     Active Substance: ESTRADIOL
     Indication: HORMONE THERAPY
     Dosage: 4.0 MILLIGRAM, TWO TIMES A DAY
     Route: 060
  2. CYPROTERONE [Suspect]
     Active Substance: CYPROTERONE
     Indication: HORMONE THERAPY
     Dosage: 25.0 MILLIGRAM, ONCE A DAY
     Route: 065
  3. FINASTERIDE TABLETS [Suspect]
     Active Substance: FINASTERIDE
     Indication: HORMONE THERAPY
     Dosage: 1.0 MILLIGRAM
     Route: 065

REACTIONS (2)
  - Ventricular extrasystoles [Unknown]
  - Off label use [Unknown]
